FAERS Safety Report 7212854-4 (Version None)
Quarter: 2010Q4

REPORT INFORMATION
  Report Type: 
  Country: None (occurrence: None)
  Receive Date: 20101227
  Receipt Date: 20101222
  Transmission Date: 20110411
  Serious: No
  Sender: FDA-Public Use
  Company Number: C-10-052

PATIENT
  Sex: Female

DRUGS (1)
  1. OXYCODONE HCL [Suspect]
     Indication: ANALGESIC THERAPY
     Dosage: 10 MG ORAL TABLETS
     Route: 048

REACTIONS (2)
  - DRUG INEFFECTIVE [None]
  - DRUG TOLERANCE [None]
